FAERS Safety Report 16759804 (Version 1)
Quarter: 2019Q3

REPORT INFORMATION
  Report Type: Spontaneous
  Country: US (occurrence: US)
  Receive Date: 20190711
  Receipt Date: 20190711
  Transmission Date: 20191005
  Serious: Yes (Hospitalization)
  Sender: FDA-Public Use
  Company Number: None

PATIENT
  Age: 69 Year
  Sex: Female
  Weight: 58.1 kg

DRUGS (2)
  1. ETOPOSIDE (VP-16) [Suspect]
     Active Substance: ETOPOSIDE
     Dates: start: 20190708
  2. CYTARABINE. [Suspect]
     Active Substance: CYTARABINE
     Dates: end: 20190708

REACTIONS (7)
  - Sinus bradycardia [None]
  - QRS axis abnormal [None]
  - Bruxism [None]
  - Electrocardiogram QRS complex abnormal [None]
  - Pulse absent [None]
  - Bundle branch block right [None]
  - Electrocardiogram QT prolonged [None]

NARRATIVE: CASE EVENT DATE: 20190708
